FAERS Safety Report 5873221-9 (Version None)
Quarter: 2008Q3

REPORT INFORMATION
  Report Type: 
  Country: None (occurrence: None)
  Receive Date: 20080908
  Receipt Date: 20080827
  Transmission Date: 20090109
  Serious: Yes (Other)
  Sender: FDA-Public Use
  Company Number: BR-JNJFOC-20080900758

PATIENT
  Age: 21 Month
  Sex: Male
  Weight: 10 kg

DRUGS (1)
  1. HALDOL [Suspect]
     Indication: ACCIDENTAL EXPOSURE
     Dosage: 5 TABLETS

REACTIONS (4)
  - ACCIDENTAL EXPOSURE [None]
  - EYE MOVEMENT DISORDER [None]
  - SOMNOLENCE [None]
  - UNRESPONSIVE TO STIMULI [None]
